FAERS Safety Report 21838115 (Version 1)
Quarter: 2023Q1

REPORT INFORMATION
  Report Type: Report from Study
  Country: IN (occurrence: None)
  Receive Date: 20230109
  Receipt Date: 20230109
  Transmission Date: 20230417
  Serious: Yes (Death, Other)
  Sender: FDA-Public Use
  Company Number: IN-Merck Healthcare KGaA-9342652

PATIENT
  Age: 79 Year
  Sex: Male

DRUGS (1)
  1. BAVENCIO [Suspect]
     Active Substance: AVELUMAB
     Indication: Transitional cell carcinoma
     Route: 042

REACTIONS (2)
  - Death [Fatal]
  - Intestinal obstruction [Recovering/Resolving]

NARRATIVE: CASE EVENT DATE: 20230104
